FAERS Safety Report 17043089 (Version 2)
Quarter: 2019Q4

REPORT INFORMATION
  Report Type: Spontaneous
  Country: US (occurrence: US)
  Receive Date: 20191118
  Receipt Date: 20191224
  Transmission Date: 20200122
  Serious: No
  Sender: FDA-Public Use
  Company Number: US-JNJFOC-20191108604

PATIENT
  Age: 80 Year
  Sex: Female
  Weight: 63.56 kg

DRUGS (1)
  1. XARELTO [Suspect]
     Active Substance: RIVAROXABAN
     Indication: THROMBOSIS
     Route: 048
     Dates: start: 20191102

REACTIONS (1)
  - Fear [Not Recovered/Not Resolved]

NARRATIVE: CASE EVENT DATE: 201911
